FAERS Safety Report 7127661-0 (Version None)
Quarter: 2010Q4

REPORT INFORMATION
  Report Type: 
  Country: None (occurrence: None)
  Receive Date: 20101130
  Receipt Date: 20101118
  Transmission Date: 20110411
  Serious: Yes (Other)
  Sender: FDA-Public Use
  Company Number: US-BIOGENIDEC-2010BI041080

PATIENT
  Age: 35 Year
  Sex: Female
  Weight: 63 kg

DRUGS (7)
  1. TYSABRI [Suspect]
     Indication: MULTIPLE SCLEROSIS
     Route: 042
     Dates: start: 20100727
  2. TYSABRI [Suspect]
     Route: 042
     Dates: start: 20081101, end: 20081201
  3. TYSABRI [Suspect]
     Route: 042
     Dates: start: 20090301, end: 20100301
  4. WELLBUTRIN [Concomitant]
     Indication: DEPRESSION
  5. EFFEXOR [Concomitant]
     Indication: DEPRESSION
  6. KLONOPIN [Concomitant]
     Indication: PAIN
  7. BACLOFEN [Concomitant]
     Indication: PAIN

REACTIONS (6)
  - COGNITIVE DISORDER [None]
  - CONVULSION [None]
  - FATIGUE [None]
  - LOSS OF CONSCIOUSNESS [None]
  - PAIN IN EXTREMITY [None]
  - URINARY INCONTINENCE [None]
